FAERS Safety Report 8691926 (Version 2)
Quarter: 2013Q4

REPORT INFORMATION
  Report Type: Spontaneous
  Country: US (occurrence: US)
  Receive Date: 20120730
  Receipt Date: 20131031
  Transmission Date: 20140711
  Serious: No
  Sender: FDA-Public Use
  Company Number: US-009507513-2012SP024482

PATIENT
  Age: 22 Year
  Sex: Female
  Weight: 86.18 kg

DRUGS (3)
  1. NEXPLANON [Suspect]
     Indication: CONTRACEPTION
     Route: 059
     Dates: start: 20120315
  2. DEPAKOTE [Concomitant]
     Indication: DEPRESSION
  3. DEPAKOTE [Concomitant]
     Indication: EPILEPSY

REACTIONS (4)
  - Muscle spasms [Unknown]
  - Pain in extremity [Unknown]
  - Metrorrhagia [Unknown]
  - Loss of libido [Unknown]
